FAERS Safety Report 6984962-4 (Version None)
Quarter: 2010Q3

REPORT INFORMATION
  Report Type: 
  Country: None (occurrence: None)
  Receive Date: 20100915
  Receipt Date: 20100831
  Transmission Date: 20110219
  Serious: Yes (Other)
  Sender: FDA-Public Use
  Company Number: US-SANOFI-AVENTIS-2010SA055068

PATIENT
  Age: 53 Year
  Sex: Female

DRUGS (2)
  1. LANTUS [Suspect]
     Dosage: DOSE:86 UNIT(S)
     Route: 058
     Dates: start: 20000101
  2. OPTICLICK [Suspect]
     Route: 058

REACTIONS (2)
  - ATRIAL FIBRILLATION [None]
  - CATARACT [None]
